FAERS Safety Report 18405424 (Version 1)
Quarter: 2020Q4

REPORT INFORMATION
  Report Type: Spontaneous
  Country: US (occurrence: US)
  Receive Date: 20201020
  Receipt Date: 20201020
  Transmission Date: 20210114
  Serious: No
  Sender: FDA-Public Use
  Company Number: US-PFIZER INC-2020403271

PATIENT
  Age: 75 Year
  Sex: Female
  Weight: 49.9 kg

DRUGS (1)
  1. IBRANCE [Suspect]
     Active Substance: PALBOCICLIB
     Indication: BREAST CANCER FEMALE
     Dosage: 75 MG, CYCLIC [1 DAILY FOR 21 DAYS]
     Route: 048
     Dates: start: 2018

REACTIONS (2)
  - Dry skin [Unknown]
  - Fatigue [Unknown]
